FAERS Safety Report 5498020-1 (Version None)
Quarter: 2007Q4

REPORT INFORMATION
  Report Type: 
  Country: None (occurrence: None)
  Receive Date: 20071025
  Receipt Date: 20071015
  Transmission Date: 20080405
  Serious: Yes (Other)
  Sender: FDA-Public Use
  Company Number: US-PFIZER INC-2007069358

PATIENT
  Sex: Male
  Weight: 95.3 kg

DRUGS (11)
  1. LIPITOR [Suspect]
     Route: 048
     Dates: start: 20050101, end: 20070729
  2. INSPRA [Suspect]
     Indication: BLOOD PRESSURE
     Route: 048
  3. CALAN [Suspect]
     Indication: HYPERTENSION
     Route: 048
  4. GLUCOSAMINE [Concomitant]
  5. VITAMIN CAP [Concomitant]
  6. VITAMIN A [Concomitant]
  7. ASCORBIC ACID [Concomitant]
  8. VITAMIN D [Concomitant]
  9. VITAMIN E [Concomitant]
  10. VITAMIN B [Concomitant]
  11. ANTIOXIDANTS [Concomitant]

REACTIONS (4)
  - HAEMATOMA [None]
  - INSOMNIA [None]
  - MUSCLE SPASMS [None]
  - MYALGIA [None]
